FAERS Safety Report 4389955-1 (Version None)
Quarter: 2004Q2

REPORT INFORMATION
  Report Type: 
  Country: None (occurrence: None)
  Receive Date: 20040628
  Receipt Date: 20040615
  Transmission Date: 20050107
  Serious: Yes (Hospitalization)
  Sender: FDA-Public Use
  Company Number: HQWYE478716JUN04

PATIENT
  Age: 69 Year
  Sex: Male
  Weight: 74.91 kg

DRUGS (1)
  1. MYLOTARG [Suspect]
     Indication: LEUKAEMIA
     Dosage: UNKNOWN DOSAGE GIVEN ON TIME, INTRVNEOUS
     Route: 042
     Dates: start: 20040602, end: 20040602

REACTIONS (7)
  - ABDOMINAL DISTENSION [None]
  - BACK PAIN [None]
  - BLOOD BILIRUBIN INCREASED [None]
  - CONSTIPATION [None]
  - LIVER FUNCTION TEST ABNORMAL [None]
  - NAUSEA [None]
  - THYROID FUNCTION TEST ABNORMAL [None]
